FAERS Safety Report 24465460 (Version 1)
Quarter: 2024Q4

REPORT INFORMATION
  Report Type: Report from Study
  Country: US (occurrence: US)
  Receive Date: 20241018
  Receipt Date: 20241018
  Transmission Date: 20250115
  Serious: No
  Sender: ROCHE
  Company Number: US-ROCHE-3510857

PATIENT
  Age: 60 Year
  Sex: Male
  Weight: 103.87 kg

DRUGS (11)
  1. XOLAIR [Suspect]
     Active Substance: OMALIZUMAB
     Indication: Asthma
     Dosage: INJECT 3 ML (375 MG TOTAL) UNDER THE SKIN EVERY 14 DAYS.? FREQUENCY TEXT:EVERY 2 WEEKS
     Route: 058
     Dates: start: 20240202
  2. XOLAIR [Suspect]
     Active Substance: OMALIZUMAB
  3. ZITHROMAX [Concomitant]
     Active Substance: AZITHROMYCIN DIHYDRATE
     Dosage: TAKE 2 BY MOUTH TODAY THEN 1 DAILY FOR 4 DAYS
     Route: 048
     Dates: start: 20240206, end: 20240211
  4. SYMBICORT [Concomitant]
     Active Substance: BUDESONIDE\FORMOTEROL FUMARATE DIHYDRATE
     Dosage: INHALE 2 PUFFS 2 TIMES A DAY.
     Dates: start: 20240206
  5. DELTASONE [Concomitant]
     Active Substance: PREDNISONE
     Dosage: TAKE 2 TABLETS (40 MG) BY MOUTH 1 TIME EACH DAY FOR 5 DAYS.
     Route: 048
     Dates: start: 20240206, end: 20240211
  6. ALBUTEROL SULFATE [Concomitant]
     Active Substance: ALBUTEROL SULFATE
     Dates: start: 20240107
  7. NORVASC [Concomitant]
     Active Substance: AMLODIPINE BESYLATE
     Dosage: TAKE 1 TABLET (5 MG TOTAL) BY MOUTH ONE TIME EACH DAY.
     Route: 048
     Dates: start: 20231003
  8. ASPIRIN [Concomitant]
     Active Substance: ASPIRIN
     Dosage: USE 1 TABLET (81 MG TOTAL) IN THE MOUTH OR THROAT ONE TOME EACH DAY.
  9. TESSALON [Concomitant]
     Active Substance: BENZONATATE
     Dosage: TAKE BY MOUTH EVERY 8 HOURS IF NEEDED.
     Route: 048
     Dates: start: 20190613
  10. VITAMIN D NOS [Concomitant]
     Active Substance: CHOLECALCIFEROL\ERGOCALCIFEROL
     Dosage: TAKE 1 CAPSULE BY MOUTH 1 TIME A WEEK. 1250 MCG (50,000 UNIT)
     Dates: start: 20231009
  11. FENOFIBRATE [Concomitant]
     Active Substance: FENOFIBRATE
     Dosage: TAKE 150 MG BY MOUTH ONE TIME EACH DAY.
     Route: 048
     Dates: start: 20230613

REACTIONS (5)
  - Off label use [Unknown]
  - Erythema [Unknown]
  - Nasal congestion [Unknown]
  - Upper-airway cough syndrome [Unknown]
  - Rhinorrhoea [Unknown]
